FAERS Safety Report 10433945 (Version 1)
Quarter: 2014Q3

REPORT INFORMATION
  Report Type: Spontaneous
  Country: US (occurrence: US)
  Receive Date: 20140905
  Receipt Date: 20140905
  Transmission Date: 20150326
  Serious: Yes (Hospitalization)
  Sender: FDA-Public Use
  Company Number: US-GLAXOSMITHKLINE-A1086901A

PATIENT
  Age: 60 Year
  Sex: Male

DRUGS (6)
  1. HYDROCHLOROTHIAZIDE + LOSARTAN [Concomitant]
  2. ASPIRIN. [Concomitant]
     Active Substance: ASPIRIN
  3. SIMVASTATIN. [Concomitant]
     Active Substance: SIMVASTATIN
  4. VENTOLIN [Suspect]
     Active Substance: ALBUTEROL SULFATE
     Indication: DYSPNOEA
     Dosage: 3PUFF AS REQUIRED
     Route: 055
  5. TOPROL XL [Concomitant]
     Active Substance: METOPROLOL SUCCINATE
  6. INHALER [Suspect]
     Active Substance: UNSPECIFIED INGREDIENT
     Indication: DYSPNOEA

REACTIONS (5)
  - Stent placement [Recovered/Resolved]
  - Hypertension [Recovered/Resolved]
  - Blood cholesterol increased [Recovered/Resolved]
  - Dyspnoea [Unknown]
  - Weight decreased [Recovered/Resolved]

NARRATIVE: CASE EVENT DATE: 2004
